FAERS Safety Report 19842241 (Version 1)
Quarter: 2021Q3

REPORT INFORMATION
  Report Type: Spontaneous
  Country: BE (occurrence: BE)
  Receive Date: 20210915
  Receipt Date: 20210915
  Transmission Date: 20211014
  Serious: Yes (Other)
  Sender: FDA-Public Use
  Company Number: BE-PFIZER INC-2021870787

PATIENT
  Age: 59 Year
  Sex: Male

DRUGS (11)
  1. MESNA. [Concomitant]
     Active Substance: MESNA
     Indication: PROPHYLAXIS OF NAUSEA AND VOMITING
  2. SALINE [SODIUM CHLORIDE] [Concomitant]
     Active Substance: SODIUM CHLORIDE
     Dosage: UNK, THE DRUGS (25 % OF THE TOTAL DOSE) WERE DISSOLVED IN SALINE
  3. ETOPOSIDE. [Suspect]
     Active Substance: ETOPOSIDE
     Indication: SMALL CELL LUNG CANCER
     Dosage: 80 MG/M2, D 1, 2, 3
  4. CYCLOPHOSPHAMIDE. [Suspect]
     Active Substance: CYCLOPHOSPHAMIDE
     Indication: SMALL CELL LUNG CANCER
     Dosage: 1000 MG/M2, D1, (1 G/M^2 D 1)
  5. CYCLOPHOSPHAMIDE. [Suspect]
     Active Substance: CYCLOPHOSPHAMIDE
     Dosage: 200 MG/KG, 25 % OF THE TOTAL DOSE DISSOLVED IN SALINE AND INFUSED IN 1 HR
  6. CISPLATIN. [Concomitant]
     Active Substance: CISPLATIN
     Indication: SMALL CELL LUNG CANCER
     Dosage: 60 MG/M2, 1 COURSE
  7. METOCLOPRAMIDE. [Concomitant]
     Active Substance: METOCLOPRAMIDE
     Indication: PROPHYLAXIS OF NAUSEA AND VOMITING
  8. MESNA. [Concomitant]
     Active Substance: MESNA
     Indication: BLADDER IRRITATION
     Dosage: 10 MG/KG, Q 4 HOURS
  9. ADRIAMYCIN [Suspect]
     Active Substance: DOXORUBICIN HYDROCHLORIDE
     Indication: SMALL CELL LUNG CANCER
     Dosage: 45 MG/M2, D1
  10. ETOPOSIDE. [Suspect]
     Active Substance: ETOPOSIDE
     Dosage: 1.5 G MG/M2, 25 % OF THE TOTAL DOSE DISSOLVED IN SALINE AND GIVEN IN 2 HR AT 12 HR INTERVAL
  11. METOCLOPRAMIDE. [Concomitant]
     Active Substance: METOCLOPRAMIDE
     Indication: BLADDER IRRITATION
     Dosage: 2 MG/KG, 5 TIMES A DAY, HIGH DOSES

REACTIONS (1)
  - Atrioventricular block second degree [Recovered/Resolved]
